FAERS Safety Report 21231951 (Version 1)
Quarter: 2022Q3

REPORT INFORMATION
  Report Type: Spontaneous
  Country: GR (occurrence: GR)
  Receive Date: 20220819
  Receipt Date: 20220819
  Transmission Date: 20221026
  Serious: Yes (Other)
  Sender: FDA-Public Use
  Company Number: GR-ALS-000763

PATIENT
  Age: 29 Year
  Sex: Male

DRUGS (10)
  1. METFORMIN [Suspect]
     Active Substance: METFORMIN HYDROCHLORIDE
     Indication: Off label use
     Dosage: 2 G DAILY
     Dates: start: 20130613
  2. SITAGLIPTIN [Concomitant]
     Active Substance: SITAGLIPTIN
     Indication: Latent autoimmune diabetes in adults
     Route: 065
     Dates: start: 20130613
  3. INSULIN NOS [Concomitant]
     Active Substance: INSULIN NOS
     Indication: Diabetic ketoacidosis
     Dosage: 25 IU PER DAY
     Route: 040
  4. LEVOTHYROXINE [Concomitant]
     Active Substance: LEVOTHYROXINE
     Indication: Hashitoxicosis
     Dosage: 88 MICROGRAM
     Dates: start: 20130627
  5. INSULIN DETEMIR [Concomitant]
     Active Substance: INSULIN DETEMIR
     Indication: Latent autoimmune diabetes in adults
     Route: 065
  6. INSULIN LISPRO [Concomitant]
     Active Substance: INSULIN LISPRO
     Indication: Latent autoimmune diabetes in adults
     Route: 065
  7. INSULIN NOS [Concomitant]
     Active Substance: INSULIN NOS
     Indication: Diabetic ketoacidosis
     Dosage: 20 IU PER DAY
     Route: 040
  8. INSULIN NOS [Concomitant]
     Active Substance: INSULIN NOS
     Indication: Diabetic ketoacidosis
     Dosage: DOSAGE DECREASED AT ABOUT 8 UNITS PER DAY (12 IU)
     Route: 040
  9. INSULIN NOS [Concomitant]
     Active Substance: INSULIN NOS
     Indication: Diabetic ketoacidosis
     Dosage: DOSAGE DECREASED AT ABOUT 8 UNITS PER DAY (4 IU)
     Route: 040
  10. INSULIN NOS [Concomitant]
     Active Substance: INSULIN NOS
     Indication: Diabetic ketoacidosis
     Route: 040

REACTIONS (5)
  - Hashitoxicosis [Recovering/Resolving]
  - Disease progression [Recovering/Resolving]
  - Off label use [Unknown]
  - Lid lag [Unknown]
  - Tachycardia [Unknown]
